FAERS Safety Report 6433790-7 (Version None)
Quarter: 2009Q4

REPORT INFORMATION
  Report Type: 
  Country: None (occurrence: None)
  Receive Date: 20091110
  Receipt Date: 20090825
  Transmission Date: 20100525
  Serious: No
  Sender: FDA-Public Use
  Company Number: A0804066A

PATIENT
  Sex: Female

DRUGS (2)
  1. ALTABAX [Suspect]
     Indication: LACERATION
     Route: 061
  2. ANTIBIOTIC [Concomitant]

REACTIONS (1)
  - THERAPEUTIC RESPONSE UNEXPECTED [None]
